FAERS Safety Report 5711175-6 (Version None)
Quarter: 2008Q2

REPORT INFORMATION
  Report Type: 
  Country: None (occurrence: None)
  Receive Date: 20080421
  Receipt Date: 20080410
  Transmission Date: 20081010
  Serious: Yes (Death, Life-Threatening, Hospitalization)
  Sender: FDA-Public Use
  Company Number: BR-JNJFOC-20071005719

PATIENT
  Sex: Male

DRUGS (16)
  1. TMC125 [Suspect]
     Route: 048
  2. TMC125 [Suspect]
     Indication: HIV INFECTION
     Route: 048
  3. PREZISTA [Suspect]
     Route: 048
  4. PREZISTA [Suspect]
     Indication: HIV INFECTION
     Route: 048
  5. RITONAVIR [Suspect]
     Route: 048
  6. RITONAVIR [Suspect]
     Indication: HIV INFECTION
     Route: 048
  7. FUZEON [Concomitant]
     Indication: HIV INFECTION
     Route: 058
  8. VIREAD [Concomitant]
     Indication: HIV INFECTION
     Route: 048
  9. COMBIVIR [Concomitant]
     Indication: HIV INFECTION
     Route: 048
  10. HYDROCHLOROTHIAZIDE [Concomitant]
     Indication: HYPERTENSION
     Route: 048
  11. PROPRANOLOL [Concomitant]
     Indication: HYPERTENSION
     Route: 048
  12. CAPTOPRIL [Concomitant]
     Indication: HYPERTENSION
     Route: 048
  13. BACTRIM [Concomitant]
     Indication: DIARRHOEA
     Route: 048
  14. NISTATIN [Concomitant]
     Indication: ORAL CANDIDIASIS
     Route: 048
  15. LOPERAMIDE HCL [Concomitant]
     Indication: DIARRHOEA
     Route: 048
  16. DYPIRONE [Concomitant]
     Route: 048

REACTIONS (3)
  - CARDIOPULMONARY FAILURE [None]
  - DEHYDRATION [None]
  - PNEUMOCYSTIS JIROVECI PNEUMONIA [None]
